FAERS Safety Report 16673559 (Version 1)
Quarter: 2019Q3

REPORT INFORMATION
  Report Type: Spontaneous
  Country: GR (occurrence: GR)
  Receive Date: 20190806
  Receipt Date: 20190806
  Transmission Date: 20191004
  Serious: Yes (Other)
  Sender: FDA-Public Use
  Company Number: GR-BAYER-2019-037387

PATIENT
  Age: 41 Year
  Sex: Male

DRUGS (1)
  1. BETAFERON [Suspect]
     Active Substance: INTERFERON BETA-1B
     Indication: MULTIPLE SCLEROSIS
     Dosage: 1 ML, QOD
     Route: 058
     Dates: start: 2011, end: 201808

REACTIONS (3)
  - Neutropenia [None]
  - White blood cell count abnormal [Recovered/Resolved]
  - Acute myeloid leukaemia [None]

NARRATIVE: CASE EVENT DATE: 2018
